FAERS Safety Report 24045064 (Version 1)
Quarter: 2024Q3

REPORT INFORMATION
  Report Type: Spontaneous
  Country: ES (occurrence: A1)
  Receive Date: 20240703
  Receipt Date: 20240703
  Transmission Date: 20241017
  Serious: Yes (Other)
  Sender: BRECKENRIDGE
  Company Number: A1-Breckenridge Pharmaceutical, Inc.-2158789

PATIENT
  Sex: Male

DRUGS (7)
  1. OMEPRAZOLE [Suspect]
     Active Substance: OMEPRAZOLE
  2. LENALIDOMIDE [Concomitant]
     Active Substance: LENALIDOMIDE
  3. IXAZOMIB [Suspect]
     Active Substance: IXAZOMIB
  4. ACYCLOVIR [Concomitant]
     Active Substance: ACYCLOVIR
  5. LOPERAMIDE HYDROCHLORIDE [Concomitant]
     Active Substance: LOPERAMIDE HYDROCHLORIDE
  6. METOCLOPRAMIDE [Concomitant]
     Active Substance: METOCLOPRAMIDE
  7. DEXAMETHASONE [Concomitant]
     Active Substance: DEXAMETHASONE

REACTIONS (1)
  - Renal failure [Unknown]
